FAERS Safety Report 14219136 (Version 2)
Quarter: 2018Q1

REPORT INFORMATION
  Report Type: Spontaneous
  Country: US (occurrence: US)
  Receive Date: 20171123
  Receipt Date: 20180217
  Transmission Date: 20180508
  Serious: No
  Sender: FDA-Public Use
  Company Number: US-JNJFOC-20171014136

PATIENT
  Age: 57 Year
  Sex: Male
  Weight: 103.87 kg

DRUGS (1)
  1. STELARA [Suspect]
     Active Substance: USTEKINUMAB
     Indication: PSORIASIS
     Route: 058
     Dates: start: 20161222

REACTIONS (7)
  - Skin ulcer haemorrhage [Not Recovered/Not Resolved]
  - Product label issue [Unknown]
  - Inappropriate schedule of drug administration [Unknown]
  - Skin ulcer [Not Recovered/Not Resolved]
  - Pruritus [Not Recovered/Not Resolved]
  - Psoriasis [Unknown]
  - Syringe issue [Unknown]

NARRATIVE: CASE EVENT DATE: 2017
